FAERS Safety Report 10581228 (Version 2)
Quarter: 2015Q1

REPORT INFORMATION
  Report Type: Spontaneous
  Country: CO (occurrence: None)
  Receive Date: 20141110
  Receipt Date: 20150202
  Transmission Date: 20150720
  Serious: Yes (Other)
  Sender: FDA-Public Use
  Company Number: 2014-19770

PATIENT
  Age: 64 Year
  Sex: Male

DRUGS (1)
  1. EYLEA [Suspect]
     Active Substance: AFLIBERCEPT
     Indication: AGE-RELATED MACULAR DEGENERATION
     Dates: start: 20140315

REACTIONS (3)
  - Retinal haemorrhage [None]
  - Maculopathy [None]
  - Drug ineffective [None]

NARRATIVE: CASE EVENT DATE: 20140315
